FAERS Safety Report 7167477-2 (Version None)
Quarter: 2010Q4

REPORT INFORMATION
  Report Type: 
  Country: None (occurrence: None)
  Receive Date: 20101216
  Receipt Date: 20100119
  Transmission Date: 20110411
  Serious: No
  Sender: FDA-Public Use
  Company Number: A0840205A

PATIENT
  Age: 67 Year
  Sex: Female

DRUGS (2)
  1. COMMIT [Suspect]
     Dates: start: 20090201
  2. NICOTINE POLACRILEX [Suspect]
     Dates: start: 20090201

REACTIONS (3)
  - DRUG ADMINISTRATION ERROR [None]
  - INTENTIONAL DRUG MISUSE [None]
  - NICOTINE DEPENDENCE [None]
